FAERS Safety Report 25762161 (Version 3)
Quarter: 2025Q4

REPORT INFORMATION
  Report Type: Spontaneous
  Country: US (occurrence: US)
  Receive Date: 20250904
  Receipt Date: 20251225
  Transmission Date: 20260118
  Serious: No
  Sender: ALEXION PHARMACEUTICALS
  Company Number: US-AstraZeneca-CH-00942395AP

PATIENT
  Sex: Female

DRUGS (1)
  1. BREZTRI [Suspect]
     Active Substance: BUDESONIDE\FORMOTEROL\GLYCOPYRROLATE
     Dosage: 160 MICROGRAM
     Route: 065

REACTIONS (8)
  - Dyspnoea [Unknown]
  - Pain [Unknown]
  - COVID-19 [Unknown]
  - Cough [Unknown]
  - Asthma [Unknown]
  - Product dose omission issue [Unknown]
  - Product use issue [Unknown]
  - Drug delivery system issue [Unknown]
